FAERS Safety Report 23453504 (Version 2)
Quarter: 2024Q1

REPORT INFORMATION
  Report Type: Report from Study
  Country: US (occurrence: US)
  Receive Date: 20240129
  Receipt Date: 20240210
  Transmission Date: 20240410
  Serious: Yes (Hospitalization, Disabling, Other)
  Sender: FDA-Public Use
  Company Number: US-ABBVIE-5604019

PATIENT
  Sex: Female

DRUGS (4)
  1. HUMIRA [Suspect]
     Active Substance: ADALIMUMAB
     Indication: Product used for unknown indication
     Route: 058
  2. QULIPTA [Suspect]
     Active Substance: ATOGEPANT
     Indication: Product used for unknown indication
     Dosage: FORM STRENGTH: 10MG
     Route: 048
     Dates: start: 20220421, end: 2024
  3. QULIPTA [Suspect]
     Active Substance: ATOGEPANT
     Indication: Product used for unknown indication
     Dosage: FORM STRENGTH: 10MG
     Route: 048
     Dates: start: 2024
  4. UBRELVY [Suspect]
     Active Substance: UBROGEPANT
     Indication: Product used for unknown indication
     Route: 065

REACTIONS (18)
  - Feeding disorder [Unknown]
  - Paraesthesia [Unknown]
  - Insomnia [Recovering/Resolving]
  - Hypoaesthesia [Unknown]
  - Skin burning sensation [Unknown]
  - Eyelid disorder [Unknown]
  - Seizure [Unknown]
  - Pain [Recovering/Resolving]
  - Loss of personal independence in daily activities [Unknown]
  - Paralysis [Unknown]
  - Walking aid user [Unknown]
  - Movement disorder [Recovering/Resolving]
  - Disability [Unknown]
  - Hospitalisation [Unknown]
  - Gait inability [Unknown]
  - Hemiplegic migraine [Unknown]
  - Aphasia [Unknown]
  - Eye movement disorder [Unknown]

NARRATIVE: CASE EVENT DATE: 20230101
